FAERS Safety Report 7412270-6 (Version None)
Quarter: 2011Q2

REPORT INFORMATION
  Report Type: 
  Country: None (occurrence: None)
  Receive Date: 20110413
  Receipt Date: 20110404
  Transmission Date: 20111010
  Serious: Yes (Hospitalization)
  Sender: FDA-Public Use
  Company Number: IT-JNJFOC-20110403522

PATIENT
  Sex: Male

DRUGS (6)
  1. ACTOPLUS MET [Concomitant]
     Route: 065
  2. QUINAZIL [Concomitant]
     Route: 065
  3. LEVOFLOXACIN [Suspect]
     Indication: WOUND INFECTION
     Route: 048
  4. AMARYL [Concomitant]
     Route: 065
  5. INEGY [Concomitant]
     Route: 065
  6. METFORMIN HCL [Concomitant]
     Route: 065

REACTIONS (3)
  - LARYNGOSPASM [None]
  - APHONIA [None]
  - URTICARIA [None]
